FAERS Safety Report 5248857-9 (Version None)
Quarter: 2007Q1

REPORT INFORMATION
  Report Type: 
  Country: None (occurrence: None)
  Receive Date: 20070228
  Receipt Date: 20060321
  Transmission Date: 20070707
  Serious: No
  Sender: FDA-Public Use
  Company Number: US-GLAXOSMITHKLINE-A0598414A

PATIENT
  Age: 43 Year
  Sex: Female

DRUGS (3)
  1. VALTREX [Suspect]
     Dosage: 1G VARIABLE DOSE
     Route: 048
     Dates: start: 20051101
  2. VITAMINS [Concomitant]
  3. TUMS [Concomitant]

REACTIONS (1)
  - DRUG INEFFECTIVE [None]
